FAERS Safety Report 4502345-3 (Version None)
Quarter: 2004Q4

REPORT INFORMATION
  Report Type: 
  Country: None (occurrence: None)
  Receive Date: 20041110
  Receipt Date: 20041029
  Transmission Date: 20050328
  Serious: Yes (Hospitalization)
  Sender: FDA-Public Use
  Company Number: K200401692

PATIENT
  Age: 34 Year
  Sex: Female

DRUGS (2)
  1. KEMADRIN [Suspect]
     Indication: PARKINSON'S DISEASE
  2. PHENOTHIAZINE (PHENOTHIAZINE) [Concomitant]

REACTIONS (13)
  - ABDOMINAL DISTENSION [None]
  - ABDOMINAL PAIN [None]
  - ANURIA [None]
  - CONSTIPATION [None]
  - HYPONATRAEMIA [None]
  - INJURY [None]
  - PERITONEAL DISORDER [None]
  - PYREXIA [None]
  - RENAL FAILURE ACUTE [None]
  - TENDERNESS [None]
  - TREATMENT NONCOMPLIANCE [None]
  - URINARY BLADDER RUPTURE [None]
  - VOMITING [None]
